FAERS Safety Report 11708214 (Version 1)
Quarter: 2015Q4

REPORT INFORMATION
  Report Type: Spontaneous
  Country: US (occurrence: US)
  Receive Date: 20151104
  Receipt Date: 20151104
  Transmission Date: 20160304
  Serious: No
  Sender: FDA-Public Use
  Company Number: US-ELI_LILLY_AND_COMPANY-US201106001872

PATIENT
  Age: 90 Year
  Sex: Female

DRUGS (3)
  1. FORTEO [Suspect]
     Active Substance: TERIPARATIDE
     Indication: OSTEOPOROSIS
     Dosage: 20 UG, QD
     Route: 065
     Dates: start: 20110525
  2. FORTEO [Suspect]
     Active Substance: TERIPARATIDE
     Dosage: 20 UG, QD
     Route: 065
  3. ANALGESICS [Concomitant]
     Active Substance: UNSPECIFIED INGREDIENT
     Indication: PAIN

REACTIONS (22)
  - Macular degeneration [Not Recovered/Not Resolved]
  - Macular degeneration [Unknown]
  - Eye irritation [Unknown]
  - Injection site discolouration [Unknown]
  - Thinking abnormal [Unknown]
  - Intentional product misuse [Unknown]
  - Visual acuity reduced [Unknown]
  - Eye pain [Unknown]
  - Nervousness [Unknown]
  - Asthenia [Unknown]
  - Arthralgia [Not Recovered/Not Resolved]
  - Eye disorder [Unknown]
  - General physical health deterioration [Unknown]
  - Restlessness [Unknown]
  - Pollakiuria [Recovering/Resolving]
  - Wrong technique in product usage process [Unknown]
  - Memory impairment [Unknown]
  - Dry eye [Unknown]
  - Injection site injury [Not Recovered/Not Resolved]
  - Drug ineffective [Unknown]
  - Injection site pain [Not Recovered/Not Resolved]
  - Visual impairment [Unknown]

NARRATIVE: CASE EVENT DATE: 20110612
